FAERS Safety Report 15556508 (Version 1)
Quarter: 2018Q4

REPORT INFORMATION
  Report Type: Spontaneous
  Country: US (occurrence: US)
  Receive Date: 20181026
  Receipt Date: 20181026
  Transmission Date: 20190205
  Serious: Yes (Other)
  Sender: FDA-Public Use
  Company Number: US-VIFOR (INTERNATIONAL) INC.-VIT-2018-10445

PATIENT
  Age: 69 Year
  Sex: Male

DRUGS (10)
  1. VELTASSA [Suspect]
     Active Substance: PATIROMER
     Indication: HYPERKALAEMIA
     Route: 048
     Dates: start: 20160524
  2. VIAGRA [Concomitant]
     Active Substance: SILDENAFIL CITRATE
  3. METOPROLOL TARTRATE. [Concomitant]
     Active Substance: METOPROLOL TARTRATE
  4. AMLODIPINE BESYLATE. [Concomitant]
     Active Substance: AMLODIPINE BESYLATE
  5. LISINOPRIL. [Concomitant]
     Active Substance: LISINOPRIL
  6. ATORVASTATIN CALCIUM. [Concomitant]
     Active Substance: ATORVASTATIN CALCIUM
  7. NITROGLYCERIN. [Concomitant]
     Active Substance: NITROGLYCERIN
  8. TERAZOSIN HCL [Concomitant]
     Active Substance: TERAZOSIN HYDROCHLORIDE
  9. ELIQUIS [Concomitant]
     Active Substance: APIXABAN
  10. ASPIR-81 [Concomitant]
     Active Substance: ASPIRIN

REACTIONS (1)
  - Shoulder operation [Unknown]

NARRATIVE: CASE EVENT DATE: 201810
